FAERS Safety Report 16564044 (Version 1)
Quarter: 2019Q3

REPORT INFORMATION
  Report Type: Spontaneous
  Country: US (occurrence: US)
  Receive Date: 20190530
  Receipt Date: 20190530
  Transmission Date: 20191004
  Serious: No
  Sender: FDA-Public Use
  Company Number: None

PATIENT
  Age: 68 Year
  Sex: Female
  Weight: 79.38 kg

DRUGS (2)
  1. TALTZ [Suspect]
     Active Substance: IXEKIZUMAB
     Indication: PSORIASIS
     Route: 058
     Dates: start: 201810
  2. TALTZ [Suspect]
     Active Substance: IXEKIZUMAB
     Indication: PRURITUS
     Route: 058
     Dates: start: 201810

REACTIONS (2)
  - Headache [None]
  - Blood glucose increased [None]
